FAERS Safety Report 21931641 (Version 1)
Quarter: 2023Q1

REPORT INFORMATION
  Report Type: Spontaneous
  Country: US (occurrence: None)
  Receive Date: 20230130
  Receipt Date: 20230130
  Transmission Date: 20230417
  Serious: Yes (Other)
  Sender: FDA-Public Use
  Company Number: None

PATIENT
  Age: 18 Year
  Sex: Female
  Weight: 56.7 kg

DRUGS (3)
  1. VRAYLAR [Suspect]
     Active Substance: CARIPRAZINE
     Indication: Bipolar II disorder
     Dosage: FREQUENCY : DAILY;?
     Route: 048
  2. KYLEENA [Concomitant]
     Active Substance: LEVONORGESTREL
  3. HYDROXYZINE HYDROCHLORIDE [Concomitant]
     Active Substance: HYDROXYZINE HYDROCHLORIDE

REACTIONS (9)
  - Malaise [None]
  - Tachycardia [None]
  - Dyspnoea [None]
  - Akathisia [None]
  - Muscle twitching [None]
  - Insomnia [None]
  - Headache [None]
  - Pulmonary embolism [None]
  - Therapy cessation [None]
